FAERS Safety Report 6209651-5 (Version None)
Quarter: 2009Q2

REPORT INFORMATION
  Report Type: 
  Country: None (occurrence: None)
  Receive Date: 20090529
  Receipt Date: 20090529
  Transmission Date: 20091009
  Serious: No
  Sender: FDA-Public Use
  Company Number: None

PATIENT
  Sex: Male
  Weight: 38.5557 kg

DRUGS (1)
  1. GAMUNEX [Suspect]
     Indication: IMMUNODEFICIENCY COMMON VARIABLE
     Dosage: 20GM EVERY 2 WEEKS IV DRIP
     Route: 041

REACTIONS (1)
  - URTICARIA [None]
